FAERS Safety Report 24044930 (Version 1)
Quarter: 2024Q3

REPORT INFORMATION
  Report Type: Spontaneous
  Country: AT (occurrence: AT)
  Receive Date: 20240703
  Receipt Date: 20240703
  Transmission Date: 20241017
  Serious: Yes (Other)
  Sender: ABBVIE
  Company Number: AT-MYLANLABS-2024M1058081

PATIENT
  Age: 29 Year
  Sex: Male

DRUGS (1)
  1. PANCRELIPASE [Suspect]
     Active Substance: PANCRELIPASE
     Indication: Product used for unknown indication
     Dosage: KREON 25.000 EINHEITEN - KAPSELN
     Route: 048

REACTIONS (2)
  - Foreign body in throat [Unknown]
  - Abdominal discomfort [Not Recovered/Not Resolved]
